FAERS Safety Report 4813461-0 (Version None)
Quarter: 2005Q4

REPORT INFORMATION
  Report Type: 
  Country: None (occurrence: None)
  Receive Date: 20051028
  Receipt Date: 20050214
  Transmission Date: 20060501
  Serious: No
  Sender: FDA-Public Use
  Company Number: US-GLAXOSMITHKLINE-A0545484A

PATIENT
  Age: 63 Year
  Sex: Female

DRUGS (11)
  1. ADVAIR DISKUS 100/50 [Suspect]
     Indication: ASTHMA
     Dosage: 1PUFF TWICE PER DAY
     Route: 055
     Dates: start: 20030101
  2. ALBUTEROL [Concomitant]
  3. SINGULAIR [Concomitant]
  4. ALLEGRA [Concomitant]
  5. LISINOPRIL AND HYDROCHLOROTHIAZIDE [Concomitant]
  6. PROTONIX [Concomitant]
  7. ZOCOR [Concomitant]
  8. TUSSIN DM [Concomitant]
  9. RHINOCORT [Concomitant]
  10. METAMUCIL [Concomitant]
  11. LASIX [Concomitant]

REACTIONS (2)
  - COUGH [None]
  - DYSPHONIA [None]
